FAERS Safety Report 6922837-7 (Version None)
Quarter: 2010Q3

REPORT INFORMATION
  Report Type: 
  Country: None (occurrence: None)
  Receive Date: 20100813
  Receipt Date: 20100803
  Transmission Date: 20110219
  Serious: Yes (Disabling, Other)
  Sender: FDA-Public Use
  Company Number: US-PFIZER INC-2010042228

PATIENT
  Sex: Male

DRUGS (3)
  1. CHANTIX [Suspect]
     Indication: SMOKING CESSATION THERAPY
     Dosage: STARTER AND CONTINUOUS PACKS
     Dates: start: 20080314, end: 20080612
  2. LISINOPRIL AND HYDROCHLOROTHIAZIDE [Concomitant]
     Indication: POLYCYTHAEMIA
     Dosage: UNK
     Dates: start: 20070101
  3. LISINOPRIL AND HYDROCHLOROTHIAZIDE [Concomitant]
     Indication: HYPERTENSION

REACTIONS (9)
  - ANXIETY [None]
  - BIPOLAR DISORDER [None]
  - COGNITIVE DISORDER [None]
  - CONFUSIONAL STATE [None]
  - DEPRESSION [None]
  - MANIA [None]
  - MENTAL DISORDER [None]
  - SLEEP DISORDER [None]
  - SUICIDAL IDEATION [None]
